FAERS Safety Report 18388596 (Version 1)
Quarter: 2020Q4

REPORT INFORMATION
  Report Type: Spontaneous
  Country: US (occurrence: US)
  Receive Date: 20201015
  Receipt Date: 20201015
  Transmission Date: 20210114
  Serious: Yes (Other)
  Sender: FDA-Public Use
  Company Number: US-TEVA-2020-US-1837882

PATIENT
  Sex: Female

DRUGS (1)
  1. COPAXONE [Suspect]
     Active Substance: GLATIRAMER ACETATE
     Route: 065

REACTIONS (16)
  - Blindness [Unknown]
  - Temperature intolerance [Unknown]
  - Balance disorder [Unknown]
  - Tremor [Unknown]
  - Decreased appetite [Unknown]
  - Blood pressure abnormal [Unknown]
  - General physical health deterioration [Unknown]
  - Hyperhidrosis [Unknown]
  - Therapeutic product effect incomplete [Unknown]
  - Feeling abnormal [Unknown]
  - Muscle spasms [Unknown]
  - Muscle twitching [Unknown]
  - Gait disturbance [Unknown]
  - Hypoaesthesia [Unknown]
  - Feeling hot [Unknown]
  - Migraine [Unknown]

NARRATIVE: CASE EVENT DATE: 2020
